FAERS Safety Report 6782934-6 (Version None)
Quarter: 2010Q2

REPORT INFORMATION
  Report Type: 
  Country: None (occurrence: None)
  Receive Date: 20100622
  Receipt Date: 20100610
  Transmission Date: 20101027
  Serious: Yes (Hospitalization, Other)
  Sender: FDA-Public Use
  Company Number: CA-JNJFOC-20100604107

PATIENT
  Sex: Female
  Weight: 69 kg

DRUGS (2)
  1. REMICADE [Suspect]
     Indication: PSORIASIS
     Route: 042
  2. REMICADE [Suspect]
     Route: 042

REACTIONS (7)
  - DYSPNOEA [None]
  - FACE OEDEMA [None]
  - OXYGEN SATURATION DECREASED [None]
  - PAIN [None]
  - RASH [None]
  - SCAR [None]
  - TACHYCARDIA [None]
